FAERS Safety Report 25239717 (Version 2)
Quarter: 2025Q2

REPORT INFORMATION
  Report Type: Spontaneous
  Country: FR (occurrence: FR)
  Receive Date: 20250425
  Receipt Date: 20250430
  Transmission Date: 20250717
  Serious: Yes (Death)
  Sender: MERCK SHARP & DOHME LLC
  Company Number: FR-009507513-2279833

PATIENT
  Age: 78 Year

DRUGS (4)
  1. SOTATERCEPT [Suspect]
     Active Substance: SOTATERCEPT
     Indication: Pulmonary arterial hypertension
     Route: 065
     Dates: start: 20250331
  2. SOTATERCEPT [Suspect]
     Active Substance: SOTATERCEPT
  3. SOTATERCEPT [Suspect]
     Active Substance: SOTATERCEPT
  4. SOTATERCEPT [Suspect]
     Active Substance: SOTATERCEPT

REACTIONS (1)
  - Septic shock [Fatal]

NARRATIVE: CASE EVENT DATE: 20250101
